FAERS Safety Report 6994686-5 (Version None)
Quarter: 2010Q3

REPORT INFORMATION
  Report Type: 
  Country: None (occurrence: None)
  Receive Date: 20100915
  Receipt Date: 20100831
  Transmission Date: 20110219
  Serious: Yes (Death, Hospitalization)
  Sender: FDA-Public Use
  Company Number: 2010AC000503

PATIENT
  Age: 86 Year
  Sex: Male

DRUGS (13)
  1. DIGOXIN [Suspect]
     Indication: PRODUCT USED FOR UNKNOWN INDICATION
     Dosage: 0.250 MG;QD;PO
     Route: 048
     Dates: start: 20050712
  2. LASIX [Concomitant]
  3. ZAROXOLYN [Concomitant]
  4. COUMADIN [Concomitant]
  5. ASPIRIN [Concomitant]
  6. PLAVIX [Concomitant]
  7. TOPROL-XL [Concomitant]
  8. ALDACTONE [Concomitant]
  9. LOVENOX [Concomitant]
  10. DOPAMINE [Concomitant]
  11. CORDARONE [Concomitant]
  12. ATROVENT [Concomitant]
  13. PULMICORT [Concomitant]

REACTIONS (31)
  - ABDOMINAL ABSCESS [None]
  - ANXIETY [None]
  - AORTIC VALVE SCLEROSIS [None]
  - ATELECTASIS [None]
  - CARDIOMEGALY [None]
  - CEREBRAL ATROPHY [None]
  - CEREBRAL INFARCTION [None]
  - CEREBROVASCULAR ACCIDENT [None]
  - CHRONIC OBSTRUCTIVE PULMONARY DISEASE [None]
  - DECUBITUS ULCER [None]
  - DEVICE RELATED INFECTION [None]
  - DILATATION ATRIAL [None]
  - EJECTION FRACTION DECREASED [None]
  - ELECTROCARDIOGRAM ST-T SEGMENT ABNORMAL [None]
  - EYE SWELLING [None]
  - HYPOTENSION [None]
  - INJURY [None]
  - ISCHAEMIC CEREBRAL INFARCTION [None]
  - LOBAR PNEUMONIA [None]
  - PLEURAL EFFUSION [None]
  - PNEUMONIA VIRAL [None]
  - PULMONARY CONGESTION [None]
  - RHONCHI [None]
  - SEPSIS [None]
  - THERAPEUTIC AGENT TOXICITY [None]
  - TRANSIENT ISCHAEMIC ATTACK [None]
  - TREATMENT NONCOMPLIANCE [None]
  - TRICUSPID VALVE INCOMPETENCE [None]
  - URINARY INCONTINENCE [None]
  - WHEEZING [None]
  - WOUND INFECTION [None]
